FAERS Safety Report 23680072 (Version 6)
Quarter: 2025Q3

REPORT INFORMATION
  Report Type: Report from Study
  Country: CO (occurrence: CO)
  Receive Date: 20240327
  Receipt Date: 20250801
  Transmission Date: 20251021
  Serious: Yes (Hospitalization, Congenital Anomaly)
  Sender: BIOGEN
  Company Number: CO-BIOGEN-2024BI01256838

PATIENT
  Sex: Female
  Weight: 10.6 kg

DRUGS (5)
  1. SPINRAZA [Suspect]
     Active Substance: NUSINERSEN
     Indication: Spinal muscular atrophy
     Route: 050
     Dates: start: 20230914
  2. SPINRAZA [Suspect]
     Active Substance: NUSINERSEN
     Route: 050
     Dates: start: 20230919
  3. SPINRAZA [Suspect]
     Active Substance: NUSINERSEN
     Route: 050
     Dates: start: 20230914
  4. BUDESONIDE [Concomitant]
     Active Substance: BUDESONIDE
     Indication: Spinal muscular atrophy
     Dosage: 2 PUFF EVERY TWELVE HOURS
     Route: 050
     Dates: start: 2023
  5. BUDESONIDE [Concomitant]
     Active Substance: BUDESONIDE
     Dosage: 2 PUFF EVERY TWELVE HOURS
     Route: 050
     Dates: start: 202412

REACTIONS (15)
  - Cough [Not Recovered/Not Resolved]
  - Apnoea [Not Recovered/Not Resolved]
  - Rhinitis [Not Recovered/Not Resolved]
  - Developmental hip dysplasia [Recovered/Resolved]
  - Pneumonia [Recovered/Resolved]
  - Mastication disorder [Not Recovered/Not Resolved]
  - Secretion discharge [Not Recovered/Not Resolved]
  - Underweight [Not Recovered/Not Resolved]
  - Limb deformity [Not Recovered/Not Resolved]
  - Joint dislocation [Not Recovered/Not Resolved]
  - Foot deformity [Not Recovered/Not Resolved]
  - Influenza like illness [Not Recovered/Not Resolved]
  - Dermatitis [Recovered/Resolved with Sequelae]
  - Vomiting [Recovered/Resolved]
  - Pyrexia [Not Recovered/Not Resolved]

NARRATIVE: CASE EVENT DATE: 20240101
